FAERS Safety Report 10934460 (Version 1)
Quarter: 2015Q1

REPORT INFORMATION
  Report Type: Spontaneous
  Country: US (occurrence: US)
  Receive Date: 20150320
  Receipt Date: 20150320
  Transmission Date: 20150721
  Serious: No
  Sender: FDA-Public Use
  Company Number: US-PFIZER INC-2015097099

PATIENT
  Sex: Male

DRUGS (1)
  1. SUTENT [Suspect]
     Active Substance: SUNITINIB MALATE
     Indication: METASTATIC RENAL CELL CARCINOMA
     Dosage: 50 MG, CYCLIC (EVERY OTHER DAY FOR 30 DAYS, 14 DAYS OFF)

REACTIONS (4)
  - Dysgeusia [Unknown]
  - Dyspepsia [Unknown]
  - Fatigue [Unknown]
  - Hypertension [Unknown]
